FAERS Safety Report 5505669-6 (Version None)
Quarter: 2007Q4

REPORT INFORMATION
  Report Type: 
  Country: None (occurrence: None)
  Receive Date: 20071102
  Receipt Date: 20071025
  Transmission Date: 20080405
  Serious: Yes (Disabling)
  Sender: FDA-Public Use
  Company Number: JP-ABBOTT-07P-087-0422005-00

PATIENT
  Age: 30 Year
  Sex: Male

DRUGS (2)
  1. SEVORANE LIQUID FOR INHALATION [Suspect]
     Indication: DRUG USE FOR UNKNOWN INDICATION
     Route: 055
     Dates: start: 20040401, end: 20040401
  2. ESMOLOL HCL [Suspect]
     Indication: DRUG USE FOR UNKNOWN INDICATION
     Route: 042
     Dates: start: 20040401, end: 20040401

REACTIONS (3)
  - BRADYCARDIA [None]
  - HYPOXIC ENCEPHALOPATHY [None]
  - SHOCK [None]
